FAERS Safety Report 18088970 (Version 1)
Quarter: 2020Q3

REPORT INFORMATION
  Report Type: Spontaneous
  Country: CA (occurrence: CA)
  Receive Date: 20200729
  Receipt Date: 20200729
  Transmission Date: 20201103
  Serious: Yes (Hospitalization, Other)
  Sender: FDA-Public Use
  Company Number: CA-TEVA-2020-CA-1806372

PATIENT
  Age: 13 Year
  Sex: Male
  Weight: 60 kg

DRUGS (12)
  1. ASPARAGINASE [Concomitant]
     Active Substance: ASPARAGINASE
  2. CYTARABINE. [Concomitant]
     Active Substance: CYTARABINE
  3. METHOTREXATE. [Suspect]
     Active Substance: METHOTREXATE
     Indication: ACUTE LYMPHOCYTIC LEUKAEMIA
     Route: 042
  4. ETOPOSIDE. [Concomitant]
     Active Substance: ETOPOSIDE
  5. CYCLOPHOSPHAMIDE. [Concomitant]
     Active Substance: CYCLOPHOSPHAMIDE
  6. MERCAPTOPURINE. [Concomitant]
     Active Substance: MERCAPTOPURINE
  7. DOXORUBICIN [Concomitant]
     Active Substance: DOXORUBICIN
  8. METHYLPREDNISOLONE. [Concomitant]
     Active Substance: METHYLPREDNISOLONE
  9. PEG?L?ASPARAGINASE [Concomitant]
     Active Substance: PEGASPARGASE
  10. DEXAMETHASONE. [Concomitant]
     Active Substance: DEXAMETHASONE
  11. PREDNISONE. [Concomitant]
     Active Substance: PREDNISONE
  12. VINCRISTINE SULFATE. [Concomitant]
     Active Substance: VINCRISTINE SULFATE

REACTIONS (4)
  - Mucosal inflammation [Unknown]
  - Toxicity to various agents [Unknown]
  - Stomatitis necrotising [Unknown]
  - Osteonecrosis of jaw [Unknown]
